FAERS Safety Report 12122573 (Version 2)
Quarter: 2016Q1

REPORT INFORMATION
  Report Type: Spontaneous
  Country: US (occurrence: US)
  Receive Date: 20160226
  Receipt Date: 20160324
  Transmission Date: 20160526
  Serious: No
  Sender: FDA-Public Use
  Company Number: US-JNJFOC-20160216051

PATIENT
  Sex: Female
  Weight: 72.58 kg

DRUGS (6)
  1. PERCOCET [Concomitant]
     Active Substance: ACETAMINOPHEN\OXYCODONE HYDROCHLORIDE
     Indication: BREAKTHROUGH PAIN
     Dosage: 1/325 UPTO 4 AS NECESSARY
     Route: 048
  2. LIPITOR [Concomitant]
     Active Substance: ATORVASTATIN CALCIUM
     Indication: BLOOD CHOLESTEROL
     Dosage: 10 (UNITS UNSPECIFIED)
     Route: 048
  3. LEVOTHYROXINE. [Concomitant]
     Active Substance: LEVOTHYROXINE
     Indication: HYPOTHYROIDISM
     Route: 048
  4. SANDOZ FENTANYL MATRIX TRANSDERMAL SYSTEM [Suspect]
     Active Substance: FENTANYL
     Indication: PAIN
     Route: 062
  5. XANAX [Concomitant]
     Active Substance: ALPRAZOLAM
     Indication: SLEEP DISORDER
     Dosage: UPTO 3 TABS AS NECESSARY
     Route: 048
  6. SANDOZ FENTANYL MATRIX TRANSDERMAL SYSTEM [Suspect]
     Active Substance: FENTANYL
     Indication: PAIN
     Route: 062

REACTIONS (3)
  - Nasopharyngitis [Not Recovered/Not Resolved]
  - Drug effect decreased [Unknown]
  - Pain [Recovering/Resolving]

NARRATIVE: CASE EVENT DATE: 2015
